FAERS Safety Report 13069222 (Version 1)
Quarter: 2016Q4

REPORT INFORMATION
  Report Type: Spontaneous
  Country: US (occurrence: US)
  Receive Date: 20161228
  Receipt Date: 20161228
  Transmission Date: 20170207
  Serious: No
  Sender: FDA-Public Use
  Company Number: US-PFIZER INC-2016596491

PATIENT
  Age: 60 Year
  Sex: Female
  Weight: 94.8 kg

DRUGS (6)
  1. ATENOLOL. [Concomitant]
     Active Substance: ATENOLOL
     Indication: BLOOD PRESSURE ABNORMAL
     Dosage: UNK
     Dates: start: 2010
  2. CYCLOBENZAPRINE [Concomitant]
     Active Substance: CYCLOBENZAPRINE
     Indication: MYALGIA
     Dosage: 10 MG, 3X/DAY
  3. CYCLOBENZAPRINE [Concomitant]
     Active Substance: CYCLOBENZAPRINE
     Indication: MUSCLE SPASMS
  4. SYNTHROID [Concomitant]
     Active Substance: LEVOTHYROXINE SODIUM
     Indication: BLOOD THYROID STIMULATING HORMONE DECREASED
     Dosage: 50 UG, 1X/DAY
     Dates: start: 2007
  5. FUROSEMIDE. [Concomitant]
     Active Substance: FUROSEMIDE
     Indication: FLUID RETENTION
     Dosage: 20 MG, 2X/DAY
  6. LYRICA [Suspect]
     Active Substance: PREGABALIN
     Indication: FIBROMYALGIA
     Dosage: 50 MG, 1X/DAY
     Route: 048
     Dates: start: 20161220

REACTIONS (4)
  - Feeling abnormal [Unknown]
  - Somnolence [Unknown]
  - Drug hypersensitivity [Unknown]
  - Asthenia [Unknown]

NARRATIVE: CASE EVENT DATE: 20161220
